FAERS Safety Report 9959627 (Version 5)
Quarter: 2014Q4

REPORT INFORMATION
  Report Type: Spontaneous
  Country: US (occurrence: None)
  Receive Date: 20140228
  Receipt Date: 20141124
  Transmission Date: 20150529
  Serious: Yes (Other)
  Sender: FDA-Public Use
  Company Number: 2014-US-001930

PATIENT
  Age: 52 Year
  Sex: Female
  Weight: 84.4 kg

DRUGS (4)
  1. VALIUM [Concomitant]
     Active Substance: DIAZEPAM
  2. NORCO [Concomitant]
     Active Substance: ACETAMINOPHEN\HYDROCODONE BITARTRATE
  3. DEXILANT [Concomitant]
     Active Substance: DEXLANSOPRAZOLE
  4. XYREM [Suspect]
     Active Substance: SODIUM OXYBATE
     Indication: NARCOLEPSY
     Route: 048
     Dates: start: 200907, end: 2009

REACTIONS (22)
  - Poor quality sleep [None]
  - Nausea [None]
  - Delusion [None]
  - Victim of abuse [None]
  - Seizure [None]
  - Incoherent [None]
  - Thirst [None]
  - Depression [None]
  - Drooling [None]
  - Product tampering [None]
  - Headache [None]
  - Pain [None]
  - Decreased appetite [None]
  - Incontinence [None]
  - Bedridden [None]
  - Product label issue [None]
  - Malaise [None]
  - Oropharyngeal pain [None]
  - Confusional state [None]
  - Diarrhoea [None]
  - Product quality issue [None]
  - Coma [None]

NARRATIVE: CASE EVENT DATE: 2010
